FAERS Safety Report 12792899 (Version 2)
Quarter: 2017Q2

REPORT INFORMATION
  Report Type: Spontaneous
  Country: US (occurrence: US)
  Receive Date: 20160929
  Receipt Date: 20170407
  Transmission Date: 20170830
  Serious: No
  Sender: FDA-Public Use
  Company Number: US-JNJFOC-20160916041

PATIENT
  Age: 33 Year
  Sex: Male

DRUGS (7)
  1. RISPERDAL [Suspect]
     Active Substance: RISPERIDONE
     Indication: BORDERLINE PERSONALITY DISORDER
     Route: 048
     Dates: start: 200309, end: 200404
  2. RISPERDAL [Suspect]
     Active Substance: RISPERIDONE
     Indication: BORDERLINE PERSONALITY DISORDER
     Route: 048
     Dates: start: 200412, end: 200502
  3. RISPERDAL [Suspect]
     Active Substance: RISPERIDONE
     Indication: BORDERLINE PERSONALITY DISORDER
     Route: 048
     Dates: start: 2005, end: 2008
  4. RISPERDAL [Suspect]
     Active Substance: RISPERIDONE
     Indication: BORDERLINE PERSONALITY DISORDER
     Route: 048
     Dates: start: 200411, end: 200502
  5. PROZAC [Suspect]
     Active Substance: FLUOXETINE HYDROCHLORIDE
     Indication: PRODUCT USED FOR UNKNOWN INDICATION
     Route: 048
  6. RISPERDAL [Suspect]
     Active Substance: RISPERIDONE
     Indication: BORDERLINE PERSONALITY DISORDER
     Dosage: VARYING DOSES OF 2 MG, 6 MG.
     Route: 048
     Dates: start: 200407, end: 200410
  7. RISPERDAL [Suspect]
     Active Substance: RISPERIDONE
     Indication: BORDERLINE PERSONALITY DISORDER
     Route: 048
     Dates: start: 200501, end: 200502

REACTIONS (8)
  - Gynaecomastia [Unknown]
  - Galactorrhoea [Unknown]
  - Extrapyramidal disorder [Unknown]
  - Abnormal weight gain [Unknown]
  - Motion sickness [Unknown]
  - Product use in unapproved indication [Unknown]
  - Hallucination, auditory [Unknown]
  - Off label use [Unknown]

NARRATIVE: CASE EVENT DATE: 200309
